FAERS Safety Report 9929940 (Version 1)
Quarter: 2014Q1

REPORT INFORMATION
  Report Type: Spontaneous
  Country: US (occurrence: US)
  Receive Date: 20140227
  Receipt Date: 20140227
  Transmission Date: 20141002
  Serious: No
  Sender: FDA-Public Use
  Company Number: US-GILEAD-2014-0095483

PATIENT
  Sex: Male

DRUGS (2)
  1. SOVALDI [Suspect]
     Indication: HEPATITIS C
     Dosage: 2 DF, BID
     Route: 048
     Dates: start: 20140211, end: 20140225
  2. SOVALDI [Suspect]
     Dosage: 1 DF, QD
     Route: 048
     Dates: start: 20140225

REACTIONS (1)
  - Accidental overdose [Recovered/Resolved]
